FAERS Safety Report 8919149 (Version 3)
Quarter: 2013Q3

REPORT INFORMATION
  Report Type: Report from Study
  Country: JP (occurrence: JP)
  Receive Date: 20121121
  Receipt Date: 20130816
  Transmission Date: 20140515
  Serious: Yes (Hospitalization)
  Sender: FDA-Public Use
  Company Number: JP-ELI_LILLY_AND_COMPANY-JP201211004627

PATIENT
  Sex: Female

DRUGS (1)
  1. TERIPARATIDE [Suspect]
     Dosage: UNK
     Route: 058
     Dates: start: 201202

REACTIONS (6)
  - Humerus fracture [Unknown]
  - Fall [Unknown]
  - Musculoskeletal chest pain [Unknown]
  - Malaise [Unknown]
  - Dizziness [Unknown]
  - Hallucination [Unknown]
